FAERS Safety Report 9869979 (Version 2)
Quarter: 2014Q1

REPORT INFORMATION
  Report Type: Spontaneous
  Country: GB (occurrence: None)
  Receive Date: 20140131
  Receipt Date: 20140218
  Transmission Date: 20141002
  Serious: Yes (Other)
  Sender: FDA-Public Use
  Company Number: ABR_01398_2014

PATIENT
  Age: 72 Year
  Sex: Male

DRUGS (9)
  1. ERYTHROMYCIN [Suspect]
     Indication: TOOTHACHE
     Dosage: 1 DF TID
     Route: 048
     Dates: start: 20131201, end: 20131206
  2. ERYTHROMYCIN [Suspect]
     Indication: GINGIVITIS
     Dosage: 1 DF TID
     Route: 048
     Dates: start: 20131201, end: 20131206
  3. ASPIRIN [Concomitant]
  4. CARDICOR [Concomitant]
  5. FLUVASTATIN [Concomitant]
  6. IMDUR (UNKNOWN) [Concomitant]
  7. NICORANDIL [Concomitant]
  8. RAMIPRIL [Concomitant]
  9. TILDIEM [Concomitant]

REACTIONS (3)
  - Blood glucose decreased [None]
  - Malaise [None]
  - Hypoglycaemia [None]
